FAERS Safety Report 8444182-3 (Version None)
Quarter: 2012Q2

REPORT INFORMATION
  Report Type: 
  Country: None (occurrence: None)
  Receive Date: 20120323
  Receipt Date: 20110523
  Transmission Date: 20120825
  Serious: Yes (Hospitalization)
  Sender: FDA-Public Use
  Company Number: 163-21880-11052841

PATIENT
  Age: 85 Year
  Sex: Female
  Weight: 42.6381 kg

DRUGS (2)
  1. REVLIMID [Suspect]
     Indication: MULTIPLE MYELOMA
     Dosage: 10 MG, D1-21 WEEK OFF, PO
     Route: 048
     Dates: start: 20101011, end: 20110511
  2. DEXAMETHASONE [Suspect]
     Indication: MULTIPLE MYELOMA
     Dosage: 40 MG, D1, 8, 15, 22, PO
     Route: 048
     Dates: start: 20101011, end: 20110511

REACTIONS (1)
  - FEBRILE NEUTROPENIA [None]
